FAERS Safety Report 8814809 (Version 2)
Quarter: 2012Q4

REPORT INFORMATION
  Report Type: 
  Country: AU (occurrence: AU)
  Receive Date: 20120928
  Receipt Date: 20121018
  Transmission Date: 20130627
  Serious: Yes (Death, Hospitalization, Other)
  Sender: FDA-Public Use
  Company Number: AU-B.I. PHARMACEUTICALS,INC./RIDGEFIELD-2012-AU-01673AU

PATIENT
  Age: 76 Year
  Sex: Male

DRUGS (7)
  1. PRADAXA [Suspect]
     Indication: CEREBROVASCULAR ACCIDENT PROPHYLAXIS
     Dosage: 220 mg
     Dates: start: 20110921
  2. PRADAXA [Suspect]
     Indication: ATRIAL FIBRILLATION
  3. NEXIUM [Concomitant]
     Indication: GASTROOESOPHAGEAL REFLUX DISEASE
  4. ACLASTA [Concomitant]
     Indication: OSTEOPOROSIS
  5. FRUSEMIDE [Concomitant]
     Indication: CARDIAC FAILURE CONGESTIVE
     Dosage: high doses
  6. METOLAZONE [Concomitant]
     Indication: CARDIAC FAILURE CONGESTIVE
  7. ALDACTONE [Concomitant]
     Indication: CARDIAC FAILURE CONGESTIVE

REACTIONS (1)
  - Cardiac failure [Fatal]
